FAERS Safety Report 6574213-7 (Version None)
Quarter: 2010Q1

REPORT INFORMATION
  Report Type: 
  Country: None (occurrence: None)
  Receive Date: 20100201
  Receipt Date: 20100120
  Transmission Date: 20100710
  Serious: Yes (Disabling)
  Sender: FDA-Public Use
  Company Number: 220002M10DZA

PATIENT
  Age: 11 Year
  Sex: Male
  Weight: 30 kg

DRUGS (5)
  1. SAIZEN [Suspect]
     Indication: BLOOD GROWTH HORMONE
     Dosage: 50%
     Dates: start: 20090510, end: 20090517
  2. SAIZEN [Suspect]
     Indication: CONGENITAL ANOMALY
     Dosage: 50%
     Dates: start: 20090510, end: 20090517
  3. LEVOTHYROXINE SODIUM [Concomitant]
  4. HYDROCORTONE [Concomitant]
  5. DEPAKENE [Concomitant]

REACTIONS (3)
  - ASTHENIA [None]
  - DIPLOPIA [None]
  - DIZZINESS [None]
